FAERS Safety Report 6223283-4 (Version None)
Quarter: 2009Q2

REPORT INFORMATION
  Report Type: 
  Country: None (occurrence: None)
  Receive Date: 20090611
  Receipt Date: 20090601
  Transmission Date: 20091009
  Serious: Yes (Hospitalization)
  Sender: FDA-Public Use
  Company Number: US-ELI_LILLY_AND_COMPANY-US200804006905

PATIENT
  Sex: Female
  Weight: 72.562 kg

DRUGS (14)
  1. BYETTA [Suspect]
     Indication: TYPE 2 DIABETES MELLITUS
     Dosage: 5 UG, 2/D
     Route: 058
     Dates: start: 20060101, end: 20060101
  2. BYETTA [Suspect]
     Dosage: 10 UG, 2/D
     Route: 058
     Dates: start: 20060101
  3. BYETTA [Suspect]
     Dosage: 5 UG, 2/D
     Route: 058
     Dates: start: 20070601, end: 20080201
  4. BYETTA [Suspect]
     Dosage: 10 UG, 2/D
     Route: 058
     Dates: start: 20080201, end: 20080304
  5. BYETTA [Suspect]
     Dosage: 10 UG, 2/D
     Route: 058
     Dates: start: 20080310
  6. ACTOS [Concomitant]
     Indication: DIABETES MELLITUS
     Dosage: 45 MG, DAILY (1/D)
     Route: 048
     Dates: end: 20080304
  7. ACTOS [Concomitant]
     Dosage: 45 MG, DAILY (1/D)
     Route: 048
     Dates: start: 20080310
  8. ASPIRIN [Concomitant]
     Dosage: 81 MG, DAILY (1/D)
     Route: 048
  9. VYTORIN [Concomitant]
     Indication: BLOOD CHOLESTEROL
     Dosage: UNK, DAILY (1/D)
     Route: 048
  10. PEPCID [Concomitant]
     Dosage: 20 MG, 2/D
     Route: 048
  11. TOPROL-XL [Concomitant]
     Indication: BLOOD PRESSURE
     Dosage: 25 MG, DAILY (1/D)
     Route: 048
     Dates: start: 20080101
  12. GLIMEPIRIDE [Concomitant]
     Indication: TYPE 2 DIABETES MELLITUS
     Dosage: 1 MG, DAILY (1/D)
     Route: 048
  13. METFORMIN [Concomitant]
     Indication: TYPE 2 DIABETES MELLITUS
  14. KETOPROFEN [Concomitant]
     Indication: ARTHRITIS
     Dosage: 75 MG, 2/D
     Route: 048

REACTIONS (14)
  - ANAEMIA [None]
  - ANXIETY [None]
  - ANXIETY POSTOPERATIVE [None]
  - CARDIAC STRESS TEST ABNORMAL [None]
  - CORONARY ARTERY DISEASE [None]
  - DYSPNOEA [None]
  - ECONOMIC PROBLEM [None]
  - HYPOKALAEMIA [None]
  - MITRAL VALVE DISEASE [None]
  - MITRAL VALVE INCOMPETENCE [None]
  - OEDEMA PERIPHERAL [None]
  - PRODUCT QUALITY ISSUE [None]
  - WEIGHT DECREASED [None]
  - WHITE BLOOD CELL COUNT INCREASED [None]
